FAERS Safety Report 17325209 (Version 1)
Quarter: 2020Q1

REPORT INFORMATION
  Report Type: Spontaneous
  Country: DE (occurrence: DE)
  Receive Date: 20200127
  Receipt Date: 20200127
  Transmission Date: 20200409
  Serious: Yes (Other)
  Sender: FDA-Public Use
  Company Number: DE-PFIZER INC-2020029737

PATIENT
  Age: 74 Year
  Sex: Female
  Weight: 77 kg

DRUGS (5)
  1. TORASEMID [Concomitant]
     Active Substance: TORSEMIDE
     Dosage: 1 DF, DAILY
     Dates: start: 20180817
  2. NEBIVOLOL. [Concomitant]
     Active Substance: NEBIVOLOL
     Dosage: 1 DF, DAILY
     Dates: start: 20180817
  3. TAVOR (LORAZEPAM) [Suspect]
     Active Substance: LORAZEPAM
     Dosage: 1 MG, DAILY
     Dates: start: 20191101
  4. VALSACOR [Concomitant]
     Active Substance: VALSARTAN
     Dosage: 1 DF, DAILY
     Dates: start: 20180817
  5. APIXABAN [Concomitant]
     Active Substance: APIXABAN
     Dosage: 1 DF, DAILY
     Dates: start: 20180817

REACTIONS (7)
  - Asthenia [Unknown]
  - Cardiac disorder [Unknown]
  - Drug dependence [Unknown]
  - Visual impairment [Recovered/Resolved]
  - Cardiac hypertrophy [Unknown]
  - Back pain [Unknown]
  - Intentional product misuse [Unknown]

NARRATIVE: CASE EVENT DATE: 20191111
